FAERS Safety Report 4838057-6 (Version None)
Quarter: 2005Q4

REPORT INFORMATION
  Report Type: 
  Country: None (occurrence: None)
  Receive Date: 20051121
  Receipt Date: 20051108
  Transmission Date: 20060501
  Serious: No
  Sender: FDA-Public Use
  Company Number: THYM-10698

PATIENT
  Age: 45 Year
  Sex: Female
  Weight: 81 kg

DRUGS (5)
  1. THYMOGLOBULIN [Suspect]
     Indication: PROPHYLAXIS AGAINST TRANSPLANT REJECTION
     Dosage: 125 MG QD IV
     Route: 042
     Dates: start: 20040226, end: 20040226
  2. CELLCEPT [Concomitant]
  3. CEFAZOLIN [Concomitant]
  4. DIPHENHYDRAMINE HCL [Concomitant]
  5. DEXAMETHASONE [Concomitant]

REACTIONS (4)
  - ACIDOSIS [None]
  - COMPLICATIONS OF TRANSPLANTED KIDNEY [None]
  - PULMONARY OEDEMA [None]
  - RESPIRATORY DISTRESS [None]
